FAERS Safety Report 10017224 (Version 2)
Quarter: 2014Q1

REPORT INFORMATION
  Report Type: Spontaneous
  Country: US (occurrence: US)
  Receive Date: 20140318
  Receipt Date: 20140318
  Transmission Date: 20141002
  Serious: Yes (Disabling)
  Sender: FDA-Public Use
  Company Number: US-GE HEALTHCARE MEDICAL DIAGNOSTICS-OSCN-PR-0910S-0445

PATIENT
  Age: 57 Year
  Sex: Male

DRUGS (24)
  1. OMNISCAN [Suspect]
     Indication: HYPOAESTHESIA
     Route: 042
     Dates: start: 20030916, end: 20030916
  2. OMNISCAN [Suspect]
     Indication: CONFUSIONAL STATE
     Route: 042
     Dates: start: 20030918, end: 20030918
  3. OMNISCAN [Suspect]
     Indication: HERPES ZOSTER
     Route: 042
     Dates: start: 20030924, end: 20030924
  4. NIFEREX FORTE [Concomitant]
     Indication: PRODUCT USED FOR UNKNOWN INDICATION
  5. XANAX [Concomitant]
     Indication: PRODUCT USED FOR UNKNOWN INDICATION
  6. HECTOROL [Concomitant]
     Indication: PRODUCT USED FOR UNKNOWN INDICATION
  7. NEXIUM [Concomitant]
     Indication: PRODUCT USED FOR UNKNOWN INDICATION
  8. BEXTRA [Concomitant]
     Indication: PRODUCT USED FOR UNKNOWN INDICATION
  9. LABETALOL [Concomitant]
     Indication: PRODUCT USED FOR UNKNOWN INDICATION
  10. MONOPRIL [Concomitant]
     Indication: PRODUCT USED FOR UNKNOWN INDICATION
  11. NORVASC [Concomitant]
     Indication: PRODUCT USED FOR UNKNOWN INDICATION
  12. HYDRALAZINE [Concomitant]
     Indication: PRODUCT USED FOR UNKNOWN INDICATION
  13. FLEXERIL [Concomitant]
     Indication: PRODUCT USED FOR UNKNOWN INDICATION
  14. ACYCLOVIR [Concomitant]
     Indication: PRODUCT USED FOR UNKNOWN INDICATION
  15. ASPIRIN [Concomitant]
     Indication: PRODUCT USED FOR UNKNOWN INDICATION
  16. RENAGEL [Concomitant]
     Indication: PRODUCT USED FOR UNKNOWN INDICATION
  17. PREVACID [Concomitant]
     Indication: PRODUCT USED FOR UNKNOWN INDICATION
  18. IMDUR [Concomitant]
     Indication: PRODUCT USED FOR UNKNOWN INDICATION
  19. EPOGEN [Concomitant]
     Indication: PRODUCT USED FOR UNKNOWN INDICATION
  20. DEPACON [Concomitant]
     Indication: PRODUCT USED FOR UNKNOWN INDICATION
  21. VIOXX [Concomitant]
     Indication: PRODUCT USED FOR UNKNOWN INDICATION
  22. GENTAMICIN SULFATE OPHTHALMIC [Concomitant]
     Indication: PRODUCT USED FOR UNKNOWN INDICATION
     Route: 047
  23. VALTREX [Concomitant]
     Indication: HERPES ZOSTER
  24. VALTREX [Concomitant]
     Indication: HERPES ZOSTER

REACTIONS (1)
  - Nephrogenic systemic fibrosis [Not Recovered/Not Resolved]
